FAERS Safety Report 9262085 (Version 2)
Quarter: 2013Q2

REPORT INFORMATION
  Report Type: Spontaneous
  Country: BR (occurrence: BR)
  Receive Date: 20130430
  Receipt Date: 20130508
  Transmission Date: 20140414
  Serious: Yes (Death, Hospitalization)
  Sender: FDA-Public Use
  Company Number: BR-AMGEN-BRASP2013029185

PATIENT
  Age: 55 Year
  Sex: Male

DRUGS (2)
  1. ENBREL [Suspect]
     Indication: RHEUMATOID ARTHRITIS
     Dosage: 50 MG, WEEKLY
     Route: 058
     Dates: start: 2009
  2. AAS [Concomitant]
     Dosage: UNK

REACTIONS (4)
  - American trypanosomiasis [Fatal]
  - Feeling abnormal [Unknown]
  - Sepsis [Unknown]
  - Gastrointestinal infection [Unknown]
